FAERS Safety Report 16707508 (Version 1)
Quarter: 2019Q3

REPORT INFORMATION
  Report Type: Spontaneous
  Country: US (occurrence: US)
  Receive Date: 20190815
  Receipt Date: 20190815
  Transmission Date: 20191004
  Serious: Yes (Other)
  Sender: FDA-Public Use
  Company Number: US-ASTRAZENECA-2019SF14551

PATIENT

DRUGS (5)
  1. PREVACID [Suspect]
     Active Substance: LANSOPRAZOLE
     Route: 065
     Dates: start: 1997, end: 2011
  2. PROTONIX [Suspect]
     Active Substance: PANTOPRAZOLE SODIUM
     Route: 065
     Dates: start: 1997, end: 2011
  3. NEXIUM [Suspect]
     Active Substance: ESOMEPRAZOLE MAGNESIUM
     Route: 048
     Dates: start: 1997, end: 2011
  4. PRILOSEC OTC [Suspect]
     Active Substance: OMEPRAZOLE MAGNESIUM
     Route: 048
     Dates: start: 1997, end: 2011
  5. PRILOSEC [Suspect]
     Active Substance: OMEPRAZOLE MAGNESIUM
     Route: 048
     Dates: start: 1997, end: 2011

REACTIONS (1)
  - Chronic kidney disease [Unknown]
